FAERS Safety Report 9360466 (Version 2)
Quarter: 2014Q2

REPORT INFORMATION
  Report Type: Spontaneous
  Country: US (occurrence: US)
  Receive Date: 20130621
  Receipt Date: 20140508
  Transmission Date: 20141212
  Serious: Yes (Hospitalization)
  Sender: FDA-Public Use
  Company Number: US-BAYER-2013-075591

PATIENT
  Age: 18 Year
  Sex: Female

DRUGS (4)
  1. YAZ [Suspect]
     Dosage: UNK
     Route: 048
     Dates: start: 201103, end: 20110429
  2. YASMIN [Suspect]
     Dosage: UNK
     Route: 048
     Dates: start: 201103, end: 20110429
  3. OCELLA [Suspect]
     Dosage: UNK
     Route: 048
     Dates: start: 201103, end: 20110429
  4. ACCUTANE [Concomitant]
     Indication: ACNE
     Dosage: UNK
     Dates: start: 20110321

REACTIONS (8)
  - Thrombophlebitis superficial [None]
  - Deep vein thrombosis [None]
  - Injury [None]
  - Emotional distress [None]
  - Depression [None]
  - Fear of death [None]
  - Nervousness [None]
  - Pain [None]
